FAERS Safety Report 9132067 (Version 1)
Quarter: 2013Q1

REPORT INFORMATION
  Report Type: Spontaneous
  Country: US (occurrence: US)
  Receive Date: 20130107
  Receipt Date: 20130107
  Transmission Date: 20140127
  Serious: No
  Sender: FDA-Public Use
  Company Number: US-ASTRAZENECA-2012SE95688

PATIENT
  Age: 90 Year
  Sex: Male
  Weight: 72.6 kg

DRUGS (2)
  1. SYMBICORT PMDI [Suspect]
     Indication: PULMONARY FIBROSIS
     Dosage: 80/4.5 MCG,TWO TIMES A DAY
     Route: 055
     Dates: start: 2008
  2. ZUCOR [Concomitant]
     Indication: BLOOD CHOLESTEROL INCREASED

REACTIONS (2)
  - Dysphonia [Not Recovered/Not Resolved]
  - Off label use [Unknown]
